FAERS Safety Report 10287161 (Version 2)
Quarter: 2014Q1

REPORT INFORMATION
  Report Type: Spontaneous
  Country: US (occurrence: None)
  Receive Date: 20120817
  Receipt Date: 20130815
  Transmission Date: 20141002
  Serious: Yes (Hospitalization, Other)
  Sender: FDA-Public Use
  Company Number: ADR-2012-00367

PATIENT
  Sex: Male

DRUGS (3)
  1. LIORESAL [Suspect]
     Indication: HEAD INJURY
  2. LIORESAL [Suspect]
  3. LIORESAL [Suspect]

REACTIONS (6)
  - Wound infection staphylococcal [None]
  - Wound decomposition [None]
  - Pocket erosion [None]
  - Infection [None]
  - Implant site infection [None]
  - Wound dehiscence [None]
